FAERS Safety Report 5059171-9 (Version None)
Quarter: 2006Q3

REPORT INFORMATION
  Report Type: 
  Country: None (occurrence: None)
  Receive Date: 20060718
  Receipt Date: 20060627
  Transmission Date: 20061208
  Serious: Yes (Other)
  Sender: FDA-Public Use
  Company Number: US200606005725

PATIENT
  Age: 58 Year
  Sex: Female

DRUGS (1)
  1. PROZAC [Suspect]
     Dosage: ORAL
     Route: 048

REACTIONS (1)
  - GASTRIC BYPASS [None]
